FAERS Safety Report 5423625-3 (Version None)
Quarter: 2007Q3

REPORT INFORMATION
  Report Type: 
  Country: None (occurrence: None)
  Receive Date: 20070823
  Receipt Date: 20070814
  Transmission Date: 20080115
  Serious: Yes (Hospitalization, Disabling)
  Sender: FDA-Public Use
  Company Number: US-AMGEN-US238790

PATIENT
  Sex: Male

DRUGS (6)
  1. PROCRIT [Suspect]
     Indication: RENAL FAILURE CHRONIC
     Dates: start: 20050101
  2. IRON [Concomitant]
     Route: 048
  3. COUMADIN [Concomitant]
     Route: 048
  4. ENBREL [Concomitant]
     Indication: PSORIASIS
  5. ENBREL [Concomitant]
     Indication: ARTHRITIS
  6. UNSPECIFIED MEDICATION [Concomitant]

REACTIONS (5)
  - ABASIA [None]
  - DYSPNOEA [None]
  - FATIGUE [None]
  - HOSPITALISATION [None]
  - THERAPEUTIC RESPONSE DECREASED [None]
